FAERS Safety Report 19115913 (Version 1)
Quarter: 2021Q2

REPORT INFORMATION
  Report Type: Report from Study
  Country: US (occurrence: US)
  Receive Date: 20210409
  Receipt Date: 20210409
  Transmission Date: 20210717
  Serious: Yes (Death)
  Sender: FDA-Public Use
  Company Number: US-ASTRAZENECA-2021A003174

PATIENT
  Age: 30522 Day
  Sex: Female

DRUGS (2)
  1. LYNPARZA [Suspect]
     Active Substance: OLAPARIB
     Indication: OVARIAN CANCER
     Route: 048
     Dates: start: 20201218
  2. LYNPARZA [Suspect]
     Active Substance: OLAPARIB
     Indication: RETROPERITONEAL CANCER
     Route: 048
     Dates: start: 20201218

REACTIONS (3)
  - Death [Fatal]
  - Malaise [Unknown]
  - Product dose omission in error [Unknown]

NARRATIVE: CASE EVENT DATE: 20210322
